FAERS Safety Report 10586046 (Version 1)
Quarter: 2014Q4

REPORT INFORMATION
  Report Type: Spontaneous
  Country: US (occurrence: US)
  Receive Date: 20141115
  Receipt Date: 20141115
  Transmission Date: 20150529
  Serious: Yes (Other)
  Sender: FDA-Public Use
  Company Number: US-ASTRAZENECA-2014SE85354

PATIENT
  Sex: Male

DRUGS (3)
  1. CASODEX [Suspect]
     Active Substance: BICALUTAMIDE
     Route: 048
  2. ZOLADEX [Suspect]
     Active Substance: GOSERELIN ACETATE
     Dosage: EVERY THREE MONTH
     Route: 058
  3. ZOLADEX [Suspect]
     Active Substance: GOSERELIN ACETATE
     Dosage: EVERY THREE MONTH
     Route: 058

REACTIONS (4)
  - Drug administration error [Unknown]
  - Injection site scar [Unknown]
  - Malignant neoplasm progression [Unknown]
  - Metastatic neoplasm [Unknown]
